FAERS Safety Report 23514669 (Version 2)
Quarter: 2024Q1

REPORT INFORMATION
  Report Type: Spontaneous
  Country: GB (occurrence: GB)
  Receive Date: 20240212
  Receipt Date: 20240221
  Transmission Date: 20240409
  Serious: Yes (Life-Threatening, Disabling, Congenital Anomaly, Other)
  Sender: FDA-Public Use
  Company Number: GB-MYLANLABS-2024M1013759

PATIENT
  Sex: Male

DRUGS (2)
  1. TOPIRAMATE [Suspect]
     Active Substance: TOPIRAMATE
     Indication: Migraine
     Dosage: 100 MILLIGRAM, QD
     Route: 064
  2. FOLIC ACID [Concomitant]
     Active Substance: FOLIC ACID
     Indication: Vitamin supplementation
     Dosage: 400 MICROGRAM
     Route: 064

REACTIONS (7)
  - Autism spectrum disorder [Not Recovered/Not Resolved]
  - Developmental delay [Not Recovered/Not Resolved]
  - Foetal exposure during pregnancy [Unknown]
  - Exposure via breast milk [Unknown]
  - Sensory disturbance [Unknown]
  - Incontinence [Unknown]
  - Speech disorder developmental [Unknown]
